FAERS Safety Report 6710682-7 (Version None)
Quarter: 2010Q2

REPORT INFORMATION
  Report Type: 
  Country: None (occurrence: None)
  Receive Date: 20100504
  Receipt Date: 20100504
  Transmission Date: 20101027
  Serious: Yes (Other)
  Sender: FDA-Public Use
  Company Number: None

PATIENT
  Age: 60 Year
  Sex: Female
  Weight: 100.6985 kg

DRUGS (1)
  1. AVANDIA 8MG GLAXOSMITHLINE [Suspect]
     Indication: TYPE 2 DIABETES MELLITUS
     Dosage: ONE TABLET -8MG- ONCE PO
     Route: 048
     Dates: start: 20091201, end: 20100423

REACTIONS (4)
  - DYSPNOEA [None]
  - FATIGUE [None]
  - MYALGIA [None]
  - OEDEMA [None]
